FAERS Safety Report 8123374-7 (Version None)
Quarter: 2012Q1

REPORT INFORMATION
  Report Type: 
  Country: None (occurrence: None)
  Receive Date: 20120208
  Receipt Date: 20120202
  Transmission Date: 20120608
  Serious: No
  Sender: FDA-Public Use
  Company Number: US-PFIZER INC-2012030405

PATIENT
  Sex: Female
  Weight: 68.027 kg

DRUGS (8)
  1. THYROID TAB [Concomitant]
     Indication: THYROID DISORDER
     Dosage: 60MG ONE AND HALF TABLET DAILY
  2. POTASSIUM [Concomitant]
     Dosage: 10 MG, 4X/DAY
  3. TAMSULOSIN [Concomitant]
     Indication: CARDIAC DISORDER
     Dosage: UNK, DAILY
  4. MULTI-VITAMINS [Concomitant]
     Indication: CARDIAC DISORDER
     Dosage: UNK, DAILY
  5. HYDROCHLOROTHIAZIDE [Concomitant]
     Indication: BLOOD PRESSURE ABNORMAL
     Dosage: 250 MG, DAILY
  6. TOVIAZ [Suspect]
     Indication: POLLAKIURIA
     Dosage: 4 MG, DAILY
  7. FEXOFENADINE [Concomitant]
     Indication: HYPERSENSITIVITY
     Dosage: 60 MG, 2X/DAY
  8. VITAMIN D [Concomitant]
     Dosage: 1000 IU, 2X/DAY

REACTIONS (1)
  - NOCTURIA [None]
